FAERS Safety Report 6703053-0 (Version None)
Quarter: 2010Q2

REPORT INFORMATION
  Report Type: 
  Country: None (occurrence: None)
  Receive Date: 20100428
  Receipt Date: 20100414
  Transmission Date: 20101027
  Serious: Yes (Other)
  Sender: FDA-Public Use
  Company Number: DSJ-2010-06143

PATIENT
  Age: 46 Year
  Sex: Female

DRUGS (2)
  1. BENICAR [Suspect]
     Indication: HYPERTENSION
     Dosage: 20 MG (20 MG, 1 IN 1 D), PER ORAL
     Route: 048
     Dates: start: 20100101
  2. CONTRACEPTIVE (CONTRACEPTIVE NOS) [Concomitant]

REACTIONS (4)
  - FEELING COLD [None]
  - HYPOTENSION [None]
  - PERIPHERAL COLDNESS [None]
  - SOMNOLENCE [None]
